FAERS Safety Report 24240077 (Version 1)
Quarter: 2024Q3

REPORT INFORMATION
  Report Type: Spontaneous
  Country: GB (occurrence: GB)
  Receive Date: 20240822
  Receipt Date: 20240822
  Transmission Date: 20241016
  Serious: Yes (Death, Hospitalization, Other)
  Sender: DAIICHI
  Company Number: GB-DSJP-DSE-2024-137684

PATIENT
  Age: 56 Year
  Sex: Female

DRUGS (1)
  1. ENHERTU [Suspect]
     Active Substance: FAM-TRASTUZUMAB DERUXTECAN-NXKI
     Indication: Product used for unknown indication
     Dosage: UNK
     Route: 065

REACTIONS (9)
  - Death [Fatal]
  - Sepsis [Unknown]
  - Oxygen saturation abnormal [Recovering/Resolving]
  - COVID-19 [Unknown]
  - Weight decreased [Unknown]
  - Decreased appetite [Unknown]
  - Interstitial lung disease [Unknown]
  - Body temperature increased [Recovering/Resolving]
  - Cough [Recovering/Resolving]

NARRATIVE: CASE EVENT DATE: 20240722
